FAERS Safety Report 18322897 (Version 1)
Quarter: 2020Q3

REPORT INFORMATION
  Report Type: Spontaneous
  Country: NL (occurrence: NL)
  Receive Date: 20200929
  Receipt Date: 20200929
  Transmission Date: 20201103
  Serious: Yes (Hospitalization)
  Sender: FDA-Public Use
  Company Number: NL-ACCORD-203167

PATIENT
  Sex: Male
  Weight: 88 kg

DRUGS (15)
  1. MACROGOL/MACROGOL STEARATE [Concomitant]
     Active Substance: POLYETHYLENE GLYCOLS
     Dosage: 2X PER DAY 1 PIECE
  2. METOCLOPRAMIDE. [Concomitant]
     Active Substance: METOCLOPRAMIDE
     Dosage: 10 MG, Z.N. 3 X PER DAY
  3. PANTOPRAZOLE [Concomitant]
     Active Substance: PANTOPRAZOLE
     Dosage: 40 MG, 1 X PER DAY 1 PIECE
  4. PARACETAMOL [Concomitant]
     Active Substance: ACETAMINOPHEN
     Dosage: 1000 MG STRENGTH 500 MG
  5. ALENDRONATE SODIUM/ALENDRONIC ACID [Concomitant]
     Active Substance: ALENDRONATE SODIUM
     Dosage: 70 MG, 1 PIECE ON FRIDAY ONLY
  6. METFORMIN [Concomitant]
     Active Substance: METFORMIN HYDROCHLORIDE
     Dosage: 500 MG, 2 X PER DAY 2 PIECES
  7. CALCI CHEW [Concomitant]
     Dosage: 500 MG, 1 X PER DAY 1 PIECE
  8. SULFASALAZINE. [Concomitant]
     Active Substance: SULFASALAZINE
     Dosage: 500 MG, 2 X PER DAY 3 PIECES
  9. QUETIAPINE/QUETIAPINE FUMARATE [Concomitant]
     Active Substance: QUETIAPINE FUMARATE
     Dosage: 25 MG, 1 X PER DAY 1 PIECE
  10. PREDNISOLONE. [Concomitant]
     Active Substance: PREDNISOLONE
     Dosage: 5 MG, 1 X PER DAY 1 PIECE
  11. CLOPIDOGREL [Concomitant]
     Active Substance: CLOPIDOGREL BISULFATE
     Dosage: 75 MG, 1 X PER DAY 1 PIECE
  12. ATORVASTATIN [Concomitant]
     Active Substance: ATORVASTATIN
     Dosage: 20 MG, 1 X PER DAY 1 PIECE
  13. FOLIC ACID. [Concomitant]
     Active Substance: FOLIC ACID
     Dosage: 5 MG, 2 PIECES ONLY ON WEDNESDAYS
  14. ENBREL [Concomitant]
     Active Substance: ETANERCEPT
     Dosage: 1X PER WEEK 50 MG
  15. METHOTREXATE. [Suspect]
     Active Substance: METHOTREXATE
     Indication: RHEUMATOID ARTHRITIS
     Dosage: 1 TIME PER WEEK 10 TABLETS OF 2.5 MG, ORALLY
     Dates: start: 201901, end: 20200130

REACTIONS (2)
  - Pneumothorax [Not Recovered/Not Resolved]
  - Bronchopulmonary aspergillosis [Not Recovered/Not Resolved]
